FAERS Safety Report 10021898 (Version 1)
Quarter: 2014Q1

REPORT INFORMATION
  Report Type: Spontaneous
  Country: US (occurrence: US)
  Receive Date: 20140319
  Receipt Date: 20140319
  Transmission Date: 20141002
  Serious: No
  Sender: FDA-Public Use
  Company Number: US-MYLANLABS-2013S1013768

PATIENT
  Age: 71 Year
  Sex: Male
  Weight: 80.29 kg

DRUGS (1)
  1. BENAZEPRIL HYDROCHLORIDE AND HYDROCHLOROTHIAZIDE [Suspect]
     Indication: BLOOD PRESSURE INCREASED
     Route: 048

REACTIONS (1)
  - Peripheral coldness [Recovered/Resolved]
